FAERS Safety Report 4662401-6 (Version None)
Quarter: 2005Q2

REPORT INFORMATION
  Report Type: 
  Country: None (occurrence: None)
  Receive Date: 20050512
  Receipt Date: 20050426
  Transmission Date: 20051028
  Serious: Yes (Hospitalization)
  Sender: FDA-Public Use
  Company Number: MEDI-0003330

PATIENT
  Sex: Male

DRUGS (12)
  1. SYNAGIS [Suspect]
     Indication: ANTIVIRAL PROPHYLAXIS
     Dosage: SEE IMAGE
     Route: 030
     Dates: start: 20031218, end: 20040302
  2. SYNAGIS [Suspect]
     Indication: ANTIVIRAL PROPHYLAXIS
     Dosage: SEE IMAGE
     Route: 030
     Dates: start: 20031218
  3. SYNAGIS [Suspect]
     Indication: ANTIVIRAL PROPHYLAXIS
     Dosage: SEE IMAGE
     Route: 030
     Dates: start: 20040114
  4. SYNAGIS [Suspect]
     Indication: ANTIVIRAL PROPHYLAXIS
     Dosage: SEE IMAGE
     Route: 030
     Dates: start: 20040209
  5. ALFACALCIDOL (ALFACALCIDOL) [Concomitant]
  6. EPOETIN ALFA 750 (EPOETIN ALFA) [Concomitant]
  7. MULTIPLE VITAMIN (ERGOCALCIFEROL, ASCORBIC ACID, TOCOPHEROL, FOLIC ACI [Concomitant]
  8. FERRIC PYROPHOSPHATE (FERRIC PYROPHOSPHATE) [Concomitant]
  9. LEVOTHYROXINE SODIUM [Concomitant]
  10. AMIKACIN SULFATE [Concomitant]
  11. OXYGEN (OXYGEN) [Concomitant]
  12. CEFMETAZOLE SODIUM (CEFMETAZOLE SODIUM) [Concomitant]

REACTIONS (1)
  - ASTHMA [None]
